FAERS Safety Report 7484177-X (Version None)
Quarter: 2011Q2

REPORT INFORMATION
  Report Type: 
  Country: None (occurrence: None)
  Receive Date: 20110509
  Receipt Date: 20110426
  Transmission Date: 20111010
  Serious: Yes (Hospitalization)
  Sender: FDA-Public Use
  Company Number: 2011MA004763

PATIENT
  Age: 94 Year
  Sex: Male

DRUGS (1)
  1. RISPERIDONE [Suspect]
     Indication: AGITATION
     Dosage: 0.25 MG, BID, PO
     Route: 048
     Dates: start: 20110318, end: 20110401

REACTIONS (2)
  - LIVER FUNCTION TEST ABNORMAL [None]
  - SOMNOLENCE [None]
